FAERS Safety Report 18445624 (Version 2)
Quarter: 2020Q4

REPORT INFORMATION
  Report Type: Spontaneous
  Country: SK (occurrence: SK)
  Receive Date: 20201030
  Receipt Date: 20201120
  Transmission Date: 20210114
  Serious: Yes (Hospitalization)
  Sender: FDA-Public Use
  Company Number: SK-EMD SERONO-9194154

PATIENT
  Age: 44 Year
  Sex: Female

DRUGS (4)
  1. CLADRIBINE. [Suspect]
     Active Substance: CLADRIBINE
     Dosage: SECOND CYCLE FIRST WEEK THERAPY: TWO TBS ON DAY 1 AND ONE TB EACH ON DAYS 2 TO 5.
     Dates: start: 202001
  2. CLADRIBINE. [Suspect]
     Active Substance: CLADRIBINE
     Dosage: SECOND CYCLE FIFTH WEEK THERAPY: TWO TBS ON DAY 1 AND ONE TB EACH ON DAYS 2 TO 5.
     Dates: start: 202002
  3. CLADRIBINE. [Suspect]
     Active Substance: CLADRIBINE
     Indication: MULTIPLE SCLEROSIS
     Dosage: FIRST CYCLE FIRST WEEK THERAPY: TWO TBS ON DAY 1 AND ONE EACH ON DAYS 2 TO 5.
     Dates: start: 20190212
  4. CLADRIBINE. [Suspect]
     Active Substance: CLADRIBINE
     Dosage: FIRST CYCLE FIFTH WEEK THERAPY: TWO TBS ON DAY 1 AND ONE TB EACH ON DAYS 2 TO 5.
     Dates: start: 20190313

REACTIONS (4)
  - Lymphocyte count decreased [Unknown]
  - Urinary tract infection [Recovered/Resolved]
  - Multiple sclerosis relapse [Recovered/Resolved]
  - Multiple sclerosis [Unknown]

NARRATIVE: CASE EVENT DATE: 20190213
